FAERS Safety Report 7558180-5 (Version None)
Quarter: 2011Q2

REPORT INFORMATION
  Report Type: 
  Country: None (occurrence: None)
  Receive Date: 20110620
  Receipt Date: 20110608
  Transmission Date: 20111010
  Serious: Yes (Other)
  Sender: FDA-Public Use
  Company Number: US-ROCHE-735780

PATIENT
  Sex: Female
  Weight: 59 kg

DRUGS (3)
  1. TYLENOL-500 [Concomitant]
  2. IMITREX [Concomitant]
     Indication: MIGRAINE
  3. ACCUTANE [Suspect]
     Indication: ACNE
     Route: 065
     Dates: start: 19970101, end: 19981231

REACTIONS (5)
  - ABDOMINAL PAIN [None]
  - COLITIS ULCERATIVE [None]
  - RECTAL HAEMORRHAGE [None]
  - GASTROINTESTINAL HAEMORRHAGE [None]
  - NAUSEA [None]
